FAERS Safety Report 6303104-1 (Version None)
Quarter: 2009Q3

REPORT INFORMATION
  Report Type: 
  Country: None (occurrence: None)
  Receive Date: 20090810
  Receipt Date: 20090728
  Transmission Date: 20100115
  Serious: Yes (Hospitalization)
  Sender: FDA-Public Use
  Company Number: PL-ROCHE-647720

PATIENT
  Sex: Male
  Weight: 59 kg

DRUGS (10)
  1. MYCOPHENOLATE MOFETIL [Suspect]
     Indication: RENAL TRANSPLANT
     Route: 048
     Dates: start: 20090303
  2. ADVAGRAF [Suspect]
     Indication: RENAL TRANSPLANT
     Route: 048
     Dates: start: 20090303
  3. ENCORTON [Concomitant]
     Indication: RENAL TRANSPLANT
     Route: 048
     Dates: start: 20090303
  4. AMLOZEK [Concomitant]
     Indication: HYPERTENSION
     Route: 048
     Dates: start: 20090303
  5. BISOCARD [Concomitant]
     Indication: HYPERTENSION
     Route: 048
     Dates: start: 20090303
  6. OMEPRAZOLE [Concomitant]
     Dosage: DRUG NAME: PRAZOL
     Route: 048
     Dates: start: 20090303
  7. SIMVASTEROL [Concomitant]
     Indication: LIPID METABOLISM DISORDER
     Route: 048
     Dates: start: 20090619
  8. MAGNEZIN [Concomitant]
     Route: 048
     Dates: start: 20090312
  9. ALFADIOL [Concomitant]
     Indication: OSTEOPOROSIS PROPHYLAXIS
     Route: 048
     Dates: start: 20090305
  10. CALPEROS [Concomitant]
     Indication: OSTEOPOROSIS PROPHYLAXIS
     Route: 048
     Dates: start: 20090305

REACTIONS (1)
  - PROSTATITIS [None]
